FAERS Safety Report 7057961-4 (Version None)
Quarter: 2010Q4

REPORT INFORMATION
  Report Type: 
  Country: None (occurrence: None)
  Receive Date: 20101022
  Receipt Date: 20090713
  Transmission Date: 20110411
  Serious: Yes (Hospitalization, Other)
  Sender: FDA-Public Use
  Company Number: PHBS2009US01044

PATIENT

DRUGS (1)
  1. EXJADE [Suspect]
     Dosage: 1250 MG, QD
     Route: 048

REACTIONS (2)
  - ARTHROPATHY [None]
  - SICKLE CELL ANAEMIA WITH CRISIS [None]
